FAERS Safety Report 6896754-5 (Version None)
Quarter: 2010Q3

REPORT INFORMATION
  Report Type: 
  Country: None (occurrence: None)
  Receive Date: 20100802
  Receipt Date: 20070122
  Transmission Date: 20110219
  Serious: No
  Sender: FDA-Public Use
  Company Number: US-PFIZER INC-2007006978

PATIENT
  Sex: Male
  Weight: 81.65 kg

DRUGS (13)
  1. LYRICA [Suspect]
     Indication: BURNING SENSATION
     Dates: start: 20061201, end: 20061201
  2. LYRICA [Interacting]
     Indication: HYPOAESTHESIA
  3. LYRICA [Interacting]
     Indication: PERIPHERAL COLDNESS
  4. LYRICA [Interacting]
     Indication: ARTHRALGIA
  5. NITROGLYCERIN [Interacting]
     Indication: CARDIAC DISORDER
  6. WARFARIN SODIUM [Concomitant]
  7. VALSARTAN [Concomitant]
  8. PROPRANOLOL [Concomitant]
  9. ACETYLSALICYLIC ACID SRT [Concomitant]
  10. DIGOXIN [Concomitant]
  11. AMBIEN [Concomitant]
  12. VITAMINS [Concomitant]
  13. MINERAL TAB [Concomitant]

REACTIONS (8)
  - BALANCE DISORDER [None]
  - CONFUSIONAL STATE [None]
  - CONSTIPATION [None]
  - DIZZINESS [None]
  - DRUG INTERACTION [None]
  - DRY MOUTH [None]
  - IRRITABILITY [None]
  - VISION BLURRED [None]
